FAERS Safety Report 9366059 (Version 2)
Quarter: 2013Q3

REPORT INFORMATION
  Report Type: Spontaneous
  Country: IT (occurrence: IT)
  Receive Date: 20130625
  Receipt Date: 20130709
  Transmission Date: 20140515
  Serious: Yes (Death, Other)
  Sender: FDA-Public Use
  Company Number: IT-TEVA-414596ISR

PATIENT
  Age: 62 Year
  Sex: Male

DRUGS (5)
  1. CISPLATIN [Suspect]
     Indication: NEOPLASM MALIGNANT
     Dates: start: 20130529
  2. CAMPTO [Suspect]
     Indication: NEOPLASM MALIGNANT
     Dosage: CONCENTRATE FOR SOLUTION FOR INFUSION
     Dates: start: 20130529
  3. OMEPRAZOLE [Concomitant]
     Dosage: HAS BEEN ADMINISTERED FOR OVER A YEAR
  4. DELTACORTENE [Concomitant]
     Dosage: 50 MILLIGRAM DAILY; HAS BEEN ADMINISTERED FOR OVER A YEAR
  5. KEPPRA [Concomitant]
     Dosage: 1 GRAM DAILY;

REACTIONS (3)
  - Death [Fatal]
  - Myalgia [Not Recovered/Not Resolved]
  - Muscle spasms [Not Recovered/Not Resolved]
